FAERS Safety Report 7526244-8 (Version None)
Quarter: 2011Q2

REPORT INFORMATION
  Report Type: 
  Country: None (occurrence: None)
  Receive Date: 20110606
  Receipt Date: 20110527
  Transmission Date: 20111010
  Serious: Yes (Other)
  Sender: FDA-Public Use
  Company Number: PHHY2011GB45697

PATIENT
  Age: 52 Year
  Sex: Female
  Weight: 58 kg

DRUGS (10)
  1. ACETAMINOPHEN AND CODEINE PHOSPHATE [Suspect]
     Dosage: UNK
     Route: 048
     Dates: start: 20110516
  2. BECLOMETASONE DIPROPIONATE [Concomitant]
     Dosage: UNK
     Dates: start: 20110126
  3. DICLOFENAC SODIUM [Concomitant]
     Dosage: UNK
     Dates: start: 20110513
  4. ACETAMINOPHEN AND CODEINE PHOSPHATE [Concomitant]
     Dosage: UNK
     Dates: start: 20110513
  5. DIAZEPAM [Concomitant]
     Dosage: UNK
     Dates: start: 20110513, end: 20110516
  6. VENTOLIN HFA [Concomitant]
     Dosage: UNK
     Dates: start: 20100923, end: 20110427
  7. CETIRIZINE HCL [Concomitant]
     Dosage: UNK
     Dates: start: 20110516
  8. CODEINE SULFATE [Suspect]
     Dosage: UNK
     Dates: start: 20110516
  9. SALMETEROL [Concomitant]
     Dosage: UNK
     Dates: start: 20101012, end: 20110413
  10. TRIMETHOPRIM [Concomitant]
     Dosage: UNK
     Dates: start: 20110503, end: 20110506

REACTIONS (2)
  - DRUG ERUPTION [None]
  - JOINT SWELLING [None]
